FAERS Safety Report 20833761 (Version 1)
Quarter: 2022Q2

REPORT INFORMATION
  Report Type: Spontaneous
  Country: US (occurrence: None)
  Receive Date: 20220513
  Receipt Date: 20220513
  Transmission Date: 20220721
  Serious: Yes (Other)
  Sender: FDA-Public Use
  Company Number: None

PATIENT
  Age: 80 Year
  Sex: Male
  Weight: 90.9 kg

DRUGS (6)
  1. EMPAGLIFLOZIN [Suspect]
     Active Substance: EMPAGLIFLOZIN
     Indication: Blood glucose abnormal
     Dosage: OTHER QUANTITY : 1 TABLET(S);?
     Route: 048
     Dates: start: 20220303, end: 20220507
  2. EMPAGLIFLOZIN [Suspect]
     Active Substance: EMPAGLIFLOZIN
     Indication: Glycosylated haemoglobin abnormal
  3. METFORMIN [Concomitant]
     Active Substance: METFORMIN HYDROCHLORIDE
  4. METOPROLOL [Concomitant]
     Active Substance: METOPROLOL
  5. CYANOCOBALAMIN [Concomitant]
     Active Substance: CYANOCOBALAMIN
  6. pyriodxine [Concomitant]

REACTIONS (8)
  - Dysuria [None]
  - Penile rash [None]
  - Anal rash [None]
  - Pain [None]
  - Anorectal swelling [None]
  - Renal pain [None]
  - Urinary tract infection [None]
  - Nonspecific reaction [None]

NARRATIVE: CASE EVENT DATE: 20220507
